FAERS Safety Report 19770857 (Version 2)
Quarter: 2021Q3

REPORT INFORMATION
  Report Type: Spontaneous
  Country: CN (occurrence: CN)
  Receive Date: 20210831
  Receipt Date: 20210831
  Transmission Date: 20211014
  Serious: Yes (Other)
  Sender: FDA-Public Use
  Company Number: CN-ASTRAZENECA-2021A701885

PATIENT
  Age: 29470 Day
  Sex: Female
  Weight: 56 kg

DRUGS (3)
  1. DAPAGLIFLOZIN. [Suspect]
     Active Substance: DAPAGLIFLOZIN
     Indication: DIABETES MELLITUS
     Route: 048
     Dates: start: 20210719, end: 20210722
  2. METFORMIN [Concomitant]
     Active Substance: METFORMIN HYDROCHLORIDE
     Indication: BLOOD GLUCOSE ABNORMAL
     Dosage: UNKNOWN
     Route: 065
  3. GLICLAZIDE [Concomitant]
     Active Substance: GLICLAZIDE
     Indication: BLOOD GLUCOSE ABNORMAL
     Dosage: UNKNOWN
     Route: 065

REACTIONS (1)
  - Vulvovaginal pruritus [Recovering/Resolving]

NARRATIVE: CASE EVENT DATE: 20210722
